FAERS Safety Report 8602890 (Version 3)
Quarter: 2012Q4

REPORT INFORMATION
  Report Type: 
  Country: FR (occurrence: FR)
  Receive Date: 20120607
  Receipt Date: 20121108
  Transmission Date: 20130627
  Serious: Yes (Death, Hospitalization)
  Sender: FDA-Public Use
  Company Number: PHHY2012FR046929

PATIENT
  Sex: Female

DRUGS (6)
  1. COTAREG [Suspect]
     Dosage: 1 DF, (160mg/25mg)
     Route: 048
  2. LANSOPRAZOLE [Suspect]
     Dosage: 1 DF, daily
     Route: 048
  3. NICERGOLINE [Suspect]
     Dosage: 10 mg, UNK
     Route: 048
     Dates: end: 20120511
  4. KARDEGIC [Suspect]
     Dosage: 1 DF, daily
     Route: 048
  5. AMLOR [Suspect]
     Dosage: 1 DF, daily
     Route: 048
  6. HEXAQUINE [Concomitant]

REACTIONS (8)
  - Idiopathic pulmonary fibrosis [Fatal]
  - Rales [Fatal]
  - Rheumatoid factor positive [Fatal]
  - Interstitial lung disease [Unknown]
  - Alveolitis allergic [Unknown]
  - Respiratory distress [Unknown]
  - Fall [Unknown]
  - General physical health deterioration [Unknown]
